FAERS Safety Report 10343181 (Version 3)
Quarter: 2014Q4

REPORT INFORMATION
  Report Type: Report from Study
  Country: NL (occurrence: NL)
  Receive Date: 20140725
  Receipt Date: 20141203
  Transmission Date: 20150528
  Serious: Yes (Other)
  Sender: FDA-Public Use
  Company Number: NL-BAYER-2014-051405

PATIENT
  Sex: Female

DRUGS (2)
  1. BETAFERON [Suspect]
     Active Substance: INTERFERON BETA-1B
     Dosage: UNK
     Dates: start: 2010, end: 2012
  2. BETAFERON [Suspect]
     Active Substance: INTERFERON BETA-1B
     Dosage: UNK
     Dates: start: 2012, end: 2014

REACTIONS (6)
  - Visual impairment [None]
  - Musculoskeletal disorder [None]
  - Fatigue [Recovering/Resolving]
  - Fatigue [Recovered/Resolved]
  - Multiple sclerosis relapse [None]
  - Drug dose omission [None]
